FAERS Safety Report 21280678 (Version 3)
Quarter: 2022Q4

REPORT INFORMATION
  Report Type: Report from Study
  Country: EG (occurrence: EG)
  Receive Date: 20220901
  Receipt Date: 20221018
  Transmission Date: 20230113
  Serious: No
  Sender: FDA-Public Use
  Company Number: EG-NOVARTISPH-NVSC2022EG194835

PATIENT
  Age: 35 Year
  Sex: Female

DRUGS (7)
  1. KISQALI [Suspect]
     Active Substance: RIBOCICLIB
     Indication: Breast cancer metastatic
     Dosage: 3 DOSAGE FORM, QD (3 TABLET PER DAY)
     Route: 065
  2. KISQALI [Suspect]
     Active Substance: RIBOCICLIB
     Dosage: 2 DOSAGE FORM, QD (2 TABLET PER DAY)
     Route: 065
  3. KISQALI [Suspect]
     Active Substance: RIBOCICLIB
     Dosage: 2 DOSAGE FORM, QD  (2 TABLETS PER DAY)
     Route: 048
     Dates: start: 20220616
  4. KISQALI [Suspect]
     Active Substance: RIBOCICLIB
     Dosage: 2 TABLETS ONCE DAILY FOR 3 WEEKS
     Route: 048
     Dates: start: 202206
  5. ARIMIDEX [Concomitant]
     Active Substance: ANASTROZOLE
     Indication: Hormone level abnormal
     Dosage: UNK
     Route: 065
     Dates: start: 202206
  6. ZOMETA [Concomitant]
     Active Substance: ZOLEDRONIC ACID
     Indication: Blood calcium
     Dosage: UNK, QMO
     Route: 065
     Dates: start: 202206
  7. ZOLADEX [Concomitant]
     Active Substance: GOSERELIN ACETATE
     Indication: Menstrual disorder
     Dosage: UNK, QMO
     Route: 065
     Dates: start: 202206

REACTIONS (9)
  - Decreased immune responsiveness [Unknown]
  - Hepatic function abnormal [Unknown]
  - Haemoglobin decreased [Recovering/Resolving]
  - Hepatic enzyme increased [Unknown]
  - Decreased appetite [Not Recovered/Not Resolved]
  - Vomiting [Not Recovered/Not Resolved]
  - Blood pressure increased [Unknown]
  - Inappropriate schedule of product administration [Unknown]
  - Dyspnoea [Unknown]

NARRATIVE: CASE EVENT DATE: 20220601
